FAERS Safety Report 24528944 (Version 3)
Quarter: 2024Q4

REPORT INFORMATION
  Report Type: Spontaneous
  Country: CA (occurrence: CA)
  Receive Date: 20241021
  Receipt Date: 20241127
  Transmission Date: 20250114
  Serious: Yes (Hospitalization)
  Sender: PFIZER
  Company Number: CA-PFIZER INC-202400089377

PATIENT
  Age: 44 Year
  Sex: Female

DRUGS (6)
  1. RUXIENCE [Suspect]
     Active Substance: RITUXIMAB-PVVR
     Indication: Sjogren^s syndrome
     Dosage: 375 MG EVERY 6 MONTH, PER WEEK FOR 4 CONSECUTIVE WEEKS
     Route: 042
     Dates: start: 20231006, end: 20231102
  2. RUXIENCE [Suspect]
     Active Substance: RITUXIMAB-PVVR
     Indication: Neuropathy peripheral
     Dosage: 375 MG 1 PER WEEK FOR 4 CONSECUTIVE WEEKS
     Route: 042
     Dates: start: 20240426
  3. RUXIENCE [Suspect]
     Active Substance: RITUXIMAB-PVVR
     Indication: Renal disorder
     Dosage: 375 MG 1 PER WEEK FOR 4 CONSECUTIVE WEEKS (552 MG, WEEKLY FOR 4 WEEKS)
     Route: 042
     Dates: start: 20240503
  4. RUXIENCE [Suspect]
     Active Substance: RITUXIMAB-PVVR
     Indication: Eye disorder
     Dosage: 552 MG WEEK 1 (375MG/M2 ONCE WEEKLY FOR 4 WEEKS )
     Route: 042
     Dates: start: 20241120
  5. RUXIENCE [Suspect]
     Active Substance: RITUXIMAB-PVVR
     Indication: Cryoglobulinaemia
  6. RUXIENCE [Suspect]
     Active Substance: RITUXIMAB-PVVR
     Indication: Nervous system disorder

REACTIONS (9)
  - Thrombotic thrombocytopenic purpura [Unknown]
  - Embolism [Unknown]
  - Ruptured cerebral aneurysm [Unknown]
  - Premenstrual syndrome [Unknown]
  - Condition aggravated [Recovering/Resolving]
  - Spinal cord operation [Recovered/Resolved]
  - Post procedural complication [Recovered/Resolved]
  - Productive cough [Unknown]
  - Infection [Not Recovered/Not Resolved]

NARRATIVE: CASE EVENT DATE: 20240101
